FAERS Safety Report 4358008-0 (Version None)
Quarter: 2004Q2

REPORT INFORMATION
  Report Type: 
  Country: None (occurrence: None)
  Receive Date: 20040510
  Receipt Date: 20040505
  Transmission Date: 20050107
  Serious: Yes (Other)
  Sender: FDA-Public Use
  Company Number: MK200405-0041-1

PATIENT
  Age: 27 Year
  Sex: Female

DRUGS (1)
  1. PAMELOR [Suspect]
     Dosage: 100 MG PO TID
     Route: 048

REACTIONS (4)
  - ATAXIA [None]
  - DYSARTHRIA [None]
  - TREATMENT NONCOMPLIANCE [None]
  - TREMOR [None]
